FAERS Safety Report 4339692-4 (Version None)
Quarter: 2004Q1

REPORT INFORMATION
  Report Type: 
  Country: None (occurrence: None)
  Receive Date: 20040329
  Receipt Date: 20040210
  Transmission Date: 20041129
  Serious: No
  Sender: FDA-Public Use
  Company Number: 04P-163-0249773-00

PATIENT
  Age: 74 Year
  Sex: Female

DRUGS (8)
  1. HUMIRA [Suspect]
     Indication: RHEUMATOID ARTHRITIS
     Dosage: 40 MG, 1 IN 2 WK, SUBCUTANEOUS
     Route: 058
     Dates: start: 20031101, end: 20040122
  2. FOSINOPRIL SODIUM [Concomitant]
  3. PREDNISONE [Concomitant]
  4. THYROID TAB [Concomitant]
  5. ALENDRONATE SODIUM [Concomitant]
  6. OXYCODONE HCL [Concomitant]
  7. ASPIRIN [Concomitant]
  8. RANITIDINE HYDROCHLORIDE [Concomitant]

REACTIONS (1)
  - RASH GENERALISED [None]
